FAERS Safety Report 25999555 (Version 1)
Quarter: 2025Q4

REPORT INFORMATION
  Report Type: Report from Study
  Country: CN (occurrence: CN)
  Receive Date: 20251105
  Receipt Date: 20251105
  Transmission Date: 20260118
  Serious: Yes (Other)
  Sender: ROCHE
  Company Number: CN-ROCHE-10000422425

PATIENT

DRUGS (39)
  1. BEVACIZUMAB [Suspect]
     Active Substance: BEVACIZUMAB
     Indication: Cervix cancer metastatic
     Route: 042
  2. BEVACIZUMAB [Suspect]
     Active Substance: BEVACIZUMAB
     Indication: Cervix carcinoma
  3. BEVACIZUMAB [Suspect]
     Active Substance: BEVACIZUMAB
     Indication: Cervix carcinoma recurrent
  4. PACLITAXEL [Suspect]
     Active Substance: PACLITAXEL
     Indication: Cervix cancer metastatic
     Dosage: 135-175 MG/M2
     Route: 042
  5. PACLITAXEL [Suspect]
     Active Substance: PACLITAXEL
     Indication: Cervix carcinoma
  6. PACLITAXEL [Suspect]
     Active Substance: PACLITAXEL
     Indication: Cervix carcinoma recurrent
  7. CISPLATIN [Suspect]
     Active Substance: CISPLATIN
     Indication: Cervix cancer metastatic
     Route: 042
  8. CISPLATIN [Suspect]
     Active Substance: CISPLATIN
     Indication: Cervix carcinoma
  9. CISPLATIN [Suspect]
     Active Substance: CISPLATIN
     Indication: Cervix carcinoma recurrent
  10. NEDAPLATIN [Suspect]
     Active Substance: NEDAPLATIN
     Indication: Cervix cancer metastatic
     Route: 042
  11. NEDAPLATIN [Suspect]
     Active Substance: NEDAPLATIN
     Indication: Cervix carcinoma
  12. NEDAPLATIN [Suspect]
     Active Substance: NEDAPLATIN
     Indication: Cervix carcinoma recurrent
  13. CARBOPLATIN [Suspect]
     Active Substance: CARBOPLATIN
     Indication: Cervix cancer metastatic
     Route: 042
  14. CARBOPLATIN [Suspect]
     Active Substance: CARBOPLATIN
     Indication: Cervix carcinoma
  15. CARBOPLATIN [Suspect]
     Active Substance: CARBOPLATIN
     Indication: Cervix carcinoma recurrent
  16. CADONILIMAB [Suspect]
     Active Substance: CADONILIMAB
     Indication: Cervix cancer metastatic
     Route: 042
  17. CADONILIMAB [Suspect]
     Active Substance: CADONILIMAB
     Indication: Cervix carcinoma
  18. CADONILIMAB [Suspect]
     Active Substance: CADONILIMAB
     Indication: Cervix carcinoma recurrent
  19. CAMRELIZUMAB [Suspect]
     Active Substance: CAMRELIZUMAB
     Indication: Cervix cancer metastatic
     Route: 065
  20. CAMRELIZUMAB [Suspect]
     Active Substance: CAMRELIZUMAB
     Indication: Cervix carcinoma
  21. CAMRELIZUMAB [Suspect]
     Active Substance: CAMRELIZUMAB
     Indication: Cervix carcinoma recurrent
  22. PEMBROLIZUMAB [Suspect]
     Active Substance: PEMBROLIZUMAB
     Indication: Cervix cancer metastatic
     Route: 065
  23. PEMBROLIZUMAB [Suspect]
     Active Substance: PEMBROLIZUMAB
     Indication: Cervix carcinoma
  24. PEMBROLIZUMAB [Suspect]
     Active Substance: PEMBROLIZUMAB
     Indication: Cervix carcinoma recurrent
  25. SINTILIMAB [Suspect]
     Active Substance: SINTILIMAB
     Indication: Cervix cancer metastatic
     Route: 065
  26. SINTILIMAB [Suspect]
     Active Substance: SINTILIMAB
     Indication: Cervix carcinoma
  27. SINTILIMAB [Suspect]
     Active Substance: SINTILIMAB
     Indication: Cervix carcinoma recurrent
  28. PENPULIMAB [Suspect]
     Active Substance: PENPULIMAB
     Indication: Cervix cancer metastatic
     Route: 065
  29. PENPULIMAB [Suspect]
     Active Substance: PENPULIMAB
     Indication: Cervix carcinoma
  30. PENPULIMAB [Suspect]
     Active Substance: PENPULIMAB
     Indication: Cervix carcinoma recurrent
  31. TISLELIZUMAB [Suspect]
     Active Substance: TISLELIZUMAB
     Indication: Cervix cancer metastatic
     Route: 065
  32. TISLELIZUMAB [Suspect]
     Active Substance: TISLELIZUMAB
     Indication: Cervix carcinoma
  33. TISLELIZUMAB [Suspect]
     Active Substance: TISLELIZUMAB
     Indication: Cervix carcinoma recurrent
  34. ZIMBERELIMAB [Suspect]
     Active Substance: ZIMBERELIMAB
     Indication: Cervix cancer metastatic
     Route: 065
  35. ZIMBERELIMAB [Suspect]
     Active Substance: ZIMBERELIMAB
     Indication: Cervix carcinoma
  36. ZIMBERELIMAB [Suspect]
     Active Substance: ZIMBERELIMAB
     Indication: Cervix carcinoma recurrent
  37. SERPLULIMAB [Suspect]
     Active Substance: SERPLULIMAB
     Indication: Cervix cancer metastatic
     Route: 065
  38. SERPLULIMAB [Suspect]
     Active Substance: SERPLULIMAB
     Indication: Cervix carcinoma
  39. SERPLULIMAB [Suspect]
     Active Substance: SERPLULIMAB
     Indication: Cervix carcinoma recurrent

REACTIONS (18)
  - White blood cell count decreased [Unknown]
  - Diarrhoea [Unknown]
  - Anaemia [Unknown]
  - Neutrophil count decreased [Unknown]
  - Platelet count decreased [Unknown]
  - Alanine aminotransferase increased [Unknown]
  - Aspartate aminotransferase increased [Unknown]
  - Hypokalaemia [Unknown]
  - Hypothyroidism [Unknown]
  - Pyrexia [Unknown]
  - Nausea [Unknown]
  - Vomiting [Unknown]
  - Rash [Unknown]
  - Pruritus [Unknown]
  - Fatigue [Unknown]
  - Hypoalbuminaemia [Unknown]
  - Decreased appetite [Unknown]
  - Constipation [Unknown]
